FAERS Safety Report 5710572-2 (Version None)
Quarter: 2008Q2

REPORT INFORMATION
  Report Type: 
  Country: None (occurrence: None)
  Receive Date: 20080415
  Receipt Date: 20080407
  Transmission Date: 20081010
  Serious: Yes (Hospitalization)
  Sender: FDA-Public Use
  Company Number: 15696

PATIENT
  Age: 78 Year
  Sex: Male

DRUGS (19)
  1. CYTARABINE [Suspect]
     Indication: ACUTE MYELOID LEUKAEMIA
     Dosage: 20 MG/M2 QD SC
     Route: 058
     Dates: start: 20060802, end: 20061201
  2. CORICIDIN [Concomitant]
  3. ACETAMINOPHEN [Concomitant]
  4. VITAMIN B-12 [Concomitant]
  5. PROSCAR [Concomitant]
  6. ATENOLOL [Concomitant]
  7. PANTOPRAZOLE SODIUM [Concomitant]
  8. K-DUR [Concomitant]
  9. ALLOPURINOL [Concomitant]
  10. PRED FORTE [Concomitant]
  11. KETOROLAC TROMETHAMINE [Concomitant]
  12. CENTRUM SILVER [Concomitant]
  13. TUMS [Concomitant]
  14. ARANESP [Concomitant]
  15. NEULASTA [Concomitant]
  16. AMOXICILLIN [Concomitant]
  17. CHLORHEXIDINE GLUCONATE [Concomitant]
  18. PERIDEX [Concomitant]
  19. AUGMENTIN '125' [Concomitant]

REACTIONS (21)
  - ACQUIRED OESOPHAGEAL WEB [None]
  - ANIMAL SCRATCH [None]
  - BLOOD PRESSURE INCREASED [None]
  - BONE MARROW FAILURE [None]
  - COLON ADENOMA [None]
  - COLONIC POLYP [None]
  - DIVERTICULUM [None]
  - FEBRILE NEUTROPENIA [None]
  - FLUID OVERLOAD [None]
  - GASTROINTESTINAL HAEMORRHAGE [None]
  - HAEMORRHOIDS [None]
  - HIATUS HERNIA [None]
  - IMMUNOSUPPRESSION [None]
  - LEUKAEMIC INFILTRATION PULMONARY [None]
  - NAUSEA [None]
  - OEDEMA PERIPHERAL [None]
  - PITTING OEDEMA [None]
  - PNEUMONIA [None]
  - POOR VENOUS ACCESS [None]
  - RECTAL HAEMORRHAGE [None]
  - WOUND INFECTION [None]
